FAERS Safety Report 13328884 (Version 1)
Quarter: 2017Q1

REPORT INFORMATION
  Report Type: Spontaneous
  Country: US (occurrence: US)
  Receive Date: 20170310
  Receipt Date: 20170310
  Transmission Date: 20170428
  Serious: Yes (Life-Threatening, Hospitalization)
  Sender: FDA-Public Use
  Company Number: None

PATIENT
  Age: 30 Year
  Sex: Female
  Weight: 93 kg

DRUGS (1)
  1. TUMERIC INTRAVENOUS SOLUTION, 10MG/ML [Suspect]
     Active Substance: TURMERIC
     Indication: ECZEMA
     Route: 040
     Dates: start: 20170310, end: 20170310

REACTIONS (2)
  - Cardiac arrest [None]
  - Clonus [None]

NARRATIVE: CASE EVENT DATE: 20170310
